FAERS Safety Report 6221357-5 (Version None)
Quarter: 2009Q2

REPORT INFORMATION
  Report Type: 
  Country: None (occurrence: None)
  Receive Date: 20090610
  Receipt Date: 20090602
  Transmission Date: 20091009
  Serious: Yes (Hospitalization)
  Sender: FDA-Public Use
  Company Number: ES-AVENTIS-200913052EU

PATIENT
  Age: 74 Year
  Sex: Female

DRUGS (6)
  1. SEGURIL                            /00032601/ [Suspect]
     Indication: CONGESTIVE CARDIOMYOPATHY
     Route: 048
  2. ALDACTONE [Suspect]
     Indication: CONGESTIVE CARDIOMYOPATHY
     Route: 048
  3. ENALAPRIL [Suspect]
     Indication: CONGESTIVE CARDIOMYOPATHY
     Route: 048
     Dates: end: 20090108
  4. DIGOXIN [Concomitant]
     Indication: CONGESTIVE CARDIOMYOPATHY
     Dosage: DOSE: UNK
     Route: 048
  5. DAFLON                             /00426001/ [Concomitant]
     Indication: CONGESTIVE CARDIOMYOPATHY
     Route: 048
  6. SINTROM [Concomitant]
     Indication: CONGESTIVE CARDIOMYOPATHY
     Dosage: DOSE: UNK
     Route: 048

REACTIONS (5)
  - ASTHENIA [None]
  - DIARRHOEA [None]
  - DRUG INTERACTION [None]
  - HYPERKALAEMIA [None]
  - RENAL FAILURE ACUTE [None]
